FAERS Safety Report 7050276-X (Version None)
Quarter: 2010Q4

REPORT INFORMATION
  Report Type: 
  Country: None (occurrence: None)
  Receive Date: 20101018
  Receipt Date: 20101008
  Transmission Date: 20110411
  Serious: Yes (Hospitalization)
  Sender: FDA-Public Use
  Company Number: PK-ABBOTT-10P-124-0673471-00

PATIENT
  Age: 30 Year
  Sex: Female

DRUGS (2)
  1. SIBUTRAMINE HYDROCHLORIDE MONOHYDRATE [Suspect]
     Indication: POLYCYSTIC OVARIES
     Route: 048
     Dates: start: 20100916, end: 20100920
  2. METFORMIN HCL [Concomitant]
     Indication: POLYCYSTIC OVARIES
     Route: 048

REACTIONS (1)
  - GUILLAIN-BARRE SYNDROME [None]
